FAERS Safety Report 4389456-0 (Version None)
Quarter: 2004Q3

REPORT INFORMATION
  Report Type: 
  Country: None (occurrence: None)
  Receive Date: 20040702
  Receipt Date: 20040628
  Transmission Date: 20050211
  Serious: Yes (Death)
  Sender: FDA-Public Use
  Company Number: PHNU2004DE02303

PATIENT
  Sex: Female

DRUGS (5)
  1. RITALIN [Suspect]
     Dosage: UNKNOWN
     Route: 048
  2. ASPIRIN [Concomitant]
     Dosage: UNKNOWN
     Route: 048
  3. FUROSEMIDE [Concomitant]
     Dosage: UNKNOWN
     Route: 048
  4. HALDOL [Concomitant]
     Dosage: UNKNOWN
     Route: 048
  5. DIGITOXIN TAB [Concomitant]
     Dosage: UNKNOWN
     Route: 048

REACTIONS (2)
  - DEATH [None]
  - POISONING DELIBERATE [None]
